FAERS Safety Report 10534129 (Version 1)
Quarter: 2014Q4

REPORT INFORMATION
  Report Type: Spontaneous
  Country: US (occurrence: None)
  Receive Date: 20141020
  Receipt Date: 20141020
  Transmission Date: 20150529
  Serious: Yes (Hospitalization)
  Sender: FDA-Public Use
  Company Number: 1224850-2014-00008

PATIENT
  Age: 85 Year
  Sex: Male

DRUGS (14)
  1. PHOSLO [Suspect]
     Active Substance: CALCIUM ACETATE
     Indication: BONE DISORDER
  2. CARVEDILOL. [Concomitant]
     Active Substance: CARVEDILOL
  3. LIBERTY CYCLER [Concomitant]
     Active Substance: DEVICE
  4. FINASTERIDE. [Concomitant]
     Active Substance: FINASTERIDE
  5. LEVOTHYROXINE [Concomitant]
     Active Substance: LEVOTHYROXINE
  6. PHOSLO [Concomitant]
     Active Substance: CALCIUM ACETATE
  7. EPOGEN [Concomitant]
     Active Substance: ERYTHROPOIETIN
  8. LIBERTY CYCLER CASSETTE [Concomitant]
     Active Substance: DEVICE
  9. AMLODIPINE [Concomitant]
     Active Substance: AMLODIPINE BESYLATE
  10. SIMVASTATIN. [Concomitant]
     Active Substance: SIMVASTATIN
  11. KONAFLOX [Concomitant]
  12. GENTAMICIN. [Concomitant]
     Active Substance: GENTAMICIN
  13. DELFLEX [Concomitant]
     Active Substance: CALCIUM CHLORIDE\DEXTROSE MONOHYDRATE\MAGNESIUM CHLORIDE\SODIUM CHLORIDE\SODIUM LACTATE
  14. VITAMIN D [Concomitant]
     Active Substance: CHOLECALCIFEROL

REACTIONS (1)
  - Peritonitis [None]

NARRATIVE: CASE EVENT DATE: 20140825
